FAERS Safety Report 17932614 (Version 1)
Quarter: 2020Q2

REPORT INFORMATION
  Report Type: Spontaneous
  Country: FR (occurrence: FR)
  Receive Date: 20200623
  Receipt Date: 20200623
  Transmission Date: 20200714
  Serious: Yes (Other)
  Sender: FDA-Public Use
  Company Number: FR-LANTHEUS-LMI-2020-00286

PATIENT
  Age: 72 Year
  Sex: Female
  Weight: 45 kg

DRUGS (3)
  1. DEFINITY [Suspect]
     Active Substance: PERFLUTREN
     Indication: PRODUCT USED FOR UNKNOWN INDICATION
     Dosage: 0.45 MILLILITER
     Route: 042
     Dates: start: 20200131, end: 20200131
  2. DEFINITY [Suspect]
     Active Substance: PERFLUTREN
     Dosage: 0.45 MILLILITER
     Route: 042
     Dates: start: 20200228, end: 20200228
  3. CYMBALTA [Concomitant]
     Active Substance: DULOXETINE HYDROCHLORIDE
     Indication: PRODUCT USED FOR UNKNOWN INDICATION
     Route: 065

REACTIONS (3)
  - Lacunar stroke [Recovered/Resolved]
  - Dysarthria [Unknown]
  - Vision blurred [Unknown]

NARRATIVE: CASE EVENT DATE: 20200227
